FAERS Safety Report 13231379 (Version 1)
Quarter: 2017Q1

REPORT INFORMATION
  Report Type: Spontaneous
  Country: US (occurrence: US)
  Receive Date: 20170214
  Receipt Date: 20170214
  Transmission Date: 20170428
  Serious: No
  Sender: FDA-Public Use
  Company Number: US-AMAG PHARMACEUTICALS, INC.-AMAG201600808

PATIENT

DRUGS (3)
  1. FLINTSTONES COMPLETE [Concomitant]
     Dosage: UNK, BID
  2. MAKENA [Suspect]
     Active Substance: HYDROXYPROGESTERONE CAPROATE
     Indication: PREMATURE DELIVERY
     Dosage: 250 MG, WEEKLY
     Route: 030
     Dates: start: 20160429
  3. ANTIDEPRESSANTS [Concomitant]
     Active Substance: UNSPECIFIED INGREDIENT
     Indication: DEPRESSION
     Dosage: UNK

REACTIONS (5)
  - Hypotension [Recovered/Resolved]
  - Depression [Not Recovered/Not Resolved]
  - Weight decreased [Unknown]
  - Injection site pain [Unknown]
  - Uterine spasm [Recovered/Resolved]

NARRATIVE: CASE EVENT DATE: 2016
